FAERS Safety Report 5008087-2 (Version None)
Quarter: 2006Q2

REPORT INFORMATION
  Report Type: 
  Country: None (occurrence: None)
  Receive Date: 20060517
  Receipt Date: 20060505
  Transmission Date: 20061013
  Serious: Yes (Other)
  Sender: FDA-Public Use
  Company Number: B0423557A

PATIENT
  Age: 42 Year
  Sex: Female

DRUGS (2)
  1. LAMICTAL [Suspect]
     Indication: BIPOLAR II DISORDER
  2. CITALOPRAM HYDROBROMIDE [Concomitant]

REACTIONS (6)
  - ABNORMAL DREAMS [None]
  - HALLUCINATION, VISUAL [None]
  - HEADACHE [None]
  - HYPERACUSIS [None]
  - NIGHTMARE [None]
  - SLEEP DISORDER [None]
